FAERS Safety Report 6025347-7 (Version None)
Quarter: 2008Q4

REPORT INFORMATION
  Report Type: 
  Country: None (occurrence: None)
  Receive Date: 20081231
  Receipt Date: 20081224
  Transmission Date: 20090506
  Serious: Yes (Other)
  Sender: FDA-Public Use
  Company Number: GB-MERCK-0812USA05041

PATIENT
  Age: 72 Year
  Sex: Male

DRUGS (5)
  1. DECADRON [Suspect]
     Indication: MULTIPLE MYELOMA
     Route: 048
  2. CYCLOPHOSPHAMIDE [Concomitant]
     Indication: CHEMOTHERAPY
     Route: 042
  3. VINCRISTINE SULFATE [Concomitant]
     Indication: CHEMOTHERAPY
     Route: 042
  4. DOXORUBICIN [Concomitant]
     Indication: CHEMOTHERAPY
     Route: 042
  5. ZOLEDRONIC ACID [Concomitant]
     Indication: CHEMOTHERAPY
     Route: 065

REACTIONS (3)
  - DIABETES MELLITUS [None]
  - DIABETIC HYPEROSMOLAR COMA [None]
  - DRUG INEFFECTIVE [None]
